FAERS Safety Report 25597175 (Version 1)
Quarter: 2025Q3

REPORT INFORMATION
  Report Type: Spontaneous
  Country: US (occurrence: US)
  Receive Date: 20250723
  Receipt Date: 20250723
  Transmission Date: 20251021
  Serious: No
  Sender: PROGENICS PHARMACEUTICALS
  Company Number: US-LANTHEUS MEDICAL IMAGING-LMI-2025-00172

PATIENT
  Sex: Male

DRUGS (1)
  1. PYLARIFY [Suspect]
     Active Substance: PIFLUFOLASTAT F-18
     Indication: Scan

REACTIONS (2)
  - Radioisotope scan abnormal [Unknown]
  - Drug ineffective [Unknown]
